APPROVED DRUG PRODUCT: METHOCARBAMOL
Active Ingredient: METHOCARBAMOL
Strength: 750MG
Dosage Form/Route: TABLET;ORAL
Application: A090200 | Product #002 | TE Code: AA
Applicant: HETERO LABS LTD UNIT III
Approved: Nov 6, 2009 | RLD: No | RS: No | Type: RX